FAERS Safety Report 6892719-8 (Version None)
Quarter: 2010Q3

REPORT INFORMATION
  Report Type: 
  Country: None (occurrence: None)
  Receive Date: 20100731
  Receipt Date: 20080917
  Transmission Date: 20110219
  Serious: No
  Sender: FDA-Public Use
  Company Number: US-PFIZER INC-2008072883

PATIENT
  Age: 30 Year
  Sex: Male

DRUGS (4)
  1. NEURONTIN [Suspect]
     Indication: FIBROMYALGIA
  2. PROZAC [Concomitant]
  3. ULTRAM [Concomitant]
  4. BACLOFEN [Concomitant]

REACTIONS (1)
  - RASH [None]
